FAERS Safety Report 20940531 (Version 2)
Quarter: 2022Q2

REPORT INFORMATION
  Report Type: Spontaneous
  Country: US (occurrence: US)
  Receive Date: 20220609
  Receipt Date: 20220625
  Transmission Date: 20220721
  Serious: Yes (Hospitalization, Other)
  Sender: FDA-Public Use
  Company Number: US-TEVA-2022-US-2043641

PATIENT
  Age: 40 Year
  Sex: Female

DRUGS (1)
  1. MEGESTROL [Suspect]
     Active Substance: MEGESTROL
     Indication: Endometriosis
     Dosage: AT LEAST 20 YEARS
     Route: 065

REACTIONS (2)
  - Meningioma [Recovering/Resolving]
  - Secondary adrenocortical insufficiency [Unknown]
